FAERS Safety Report 10631825 (Version 1)
Quarter: 2014Q4

REPORT INFORMATION
  Report Type: Spontaneous
  Country: US (occurrence: US)
  Receive Date: 20141205
  Receipt Date: 20141205
  Transmission Date: 20150529
  Serious: No
  Sender: FDA-Public Use
  Company Number: US-BRISTOL-MYERS SQUIBB COMPANY-21492756

PATIENT
  Age: 46 Year
  Sex: Male
  Weight: 86.17 kg

DRUGS (1)
  1. FARXIGA [Suspect]
     Active Substance: DAPAGLIFLOZIN PROPANEDIOL
     Indication: TYPE 2 DIABETES MELLITUS
     Dosage: DOSE INCREASED TO 10MG?LATER REDUCED TO 5MG?TABLETS
     Route: 048
     Dates: start: 2014

REACTIONS (2)
  - Blood creatinine increased [Unknown]
  - Weight increased [Unknown]

NARRATIVE: CASE EVENT DATE: 2014
